FAERS Safety Report 13889136 (Version 1)
Quarter: 2017Q3

REPORT INFORMATION
  Report Type: Spontaneous
  Country: US (occurrence: US)
  Receive Date: 20170822
  Receipt Date: 20170822
  Transmission Date: 20171127
  Serious: No
  Sender: FDA-Public Use
  Company Number: US-ROCHE-1168518

PATIENT
  Sex: Female

DRUGS (2)
  1. ACTEMRA [Suspect]
     Active Substance: TOCILIZUMAB
     Indication: RHEUMATOID ARTHRITIS
     Route: 050
     Dates: start: 20120315
  2. ACTEMRA [Suspect]
     Active Substance: TOCILIZUMAB
     Route: 050
     Dates: start: 20120911

REACTIONS (2)
  - Urinary tract infection [Unknown]
  - Nephrolithiasis [Unknown]
